FAERS Safety Report 4808486-5 (Version None)
Quarter: 2005Q4

REPORT INFORMATION
  Report Type: 
  Country: None (occurrence: None)
  Receive Date: 20051021
  Receipt Date: 20030716
  Transmission Date: 20060501
  Serious: No
  Sender: FDA-Public Use
  Company Number: DE_030711690

PATIENT
  Age: 14 Year
  Sex: Female

DRUGS (3)
  1. ZYPREXA [Suspect]
     Indication: ANOREXIA
     Dosage: 5 MG/DAY
     Dates: start: 20030505, end: 20030706
  2. ZYPREXA [Suspect]
     Indication: PSYCHOTIC DISORDER
     Dosage: 5 MG/DAY
     Dates: start: 20030505, end: 20030706
  3. DIPIPERON (PIPAMPERONE) [Concomitant]

REACTIONS (2)
  - OFF LABEL USE [None]
  - WHITE BLOOD CELL COUNT DECREASED [None]
